FAERS Safety Report 17629476 (Version 1)
Quarter: 2020Q2

REPORT INFORMATION
  Report Type: Report from Study
  Country: GB (occurrence: GB)
  Receive Date: 20200406
  Receipt Date: 20200406
  Transmission Date: 20200713
  Serious: Yes (Hospitalization)
  Sender: FDA-Public Use
  Company Number: GB-ROCHE-2563173

PATIENT
  Age: 76 Year
  Sex: Male
  Weight: 80.2 kg

DRUGS (3)
  1. CARBOPLATIN. [Suspect]
     Active Substance: CARBOPLATIN
     Indication: MESOTHELIOMA
     Dosage: DATE OF LAST ADMINISTRATION BEFORE SAE: 26/FEB/2020
     Route: 042
     Dates: start: 20200226
  2. BEVACIZUMAB. [Suspect]
     Active Substance: BEVACIZUMAB
     Indication: MESOTHELIOMA
     Dosage: 400 MG/16 ML?DATE OF LAST ADMINISTRATION BEFORE SAE: 26/FEB/2020
     Route: 042
     Dates: start: 20200226
  3. PEMETREXED. [Suspect]
     Active Substance: PEMETREXED
     Indication: MESOTHELIOMA
     Dosage: DATE OF LAST ADMINISTRATION BEFORE SAE: 26/FEB/2020
     Route: 042
     Dates: start: 20200226

REACTIONS (1)
  - Colitis [Recovered/Resolved]

NARRATIVE: CASE EVENT DATE: 20200302
